FAERS Safety Report 7748266-4 (Version None)
Quarter: 2011Q3

REPORT INFORMATION
  Report Type: 
  Country: None (occurrence: None)
  Receive Date: 20110913
  Receipt Date: 20110906
  Transmission Date: 20111222
  Serious: Yes (Other)
  Sender: FDA-Public Use
  Company Number: US-ABBOTT-11P-163-0851701-00

PATIENT
  Sex: Female
  Weight: 63.56 kg

DRUGS (8)
  1. NEXIUM [Concomitant]
     Indication: GASTRIC ULCER
  2. ESTROGENIC SUBSTANCE [Concomitant]
     Indication: HORMONE REPLACEMENT THERAPY
  3. HUMIRA [Suspect]
     Indication: PSORIATIC ARTHROPATHY
     Dates: start: 20100901, end: 20110824
  4. HUMIRA [Suspect]
     Indication: COLITIS ULCERATIVE
  5. CLONOPIN [Concomitant]
     Indication: ELECTROENCEPHALOGRAM ABNORMAL
  6. ESTROGENIC SUBSTANCE [Concomitant]
     Indication: HYSTERECTOMY
  7. SOMA [Concomitant]
     Indication: MUSCLE RELAXANT THERAPY
  8. NEXIUM [Concomitant]
     Indication: COLITIS ULCERATIVE

REACTIONS (5)
  - TOOTH INFECTION [None]
  - TOOTHACHE [None]
  - SINUSITIS [None]
  - TOOTH ABSCESS [None]
  - OSTEOMYELITIS [None]
